FAERS Safety Report 15268893 (Version 1)
Quarter: 2018Q3

REPORT INFORMATION
  Report Type: Spontaneous
  Country: MX (occurrence: MX)
  Receive Date: 20180813
  Receipt Date: 20180813
  Transmission Date: 20181010
  Serious: Yes (Other)
  Sender: FDA-Public Use
  Company Number: MX-MACLEODS PHARMACEUTICALS US LTD-MAC2018016323

PATIENT

DRUGS (3)
  1. PRAMIPEXOLE. [Suspect]
     Active Substance: PRAMIPEXOLE
     Dosage: 3 MILLIGRAM, QD (IMMEDIATE?RELEASE (TAKING SIX TABLETS OF 0.5 MG EVERY DAY), TABLET)
     Route: 048
  2. PRAMIPEXOLE. [Suspect]
     Active Substance: PRAMIPEXOLE
     Dosage: UNK UNK, QD (INCREASING DOSE EVERY MONTH (EXTENDED?RELEASE))
     Route: 065
  3. PRAMIPEXOLE. [Suspect]
     Active Substance: PRAMIPEXOLE
     Indication: PARKINSON^S DISEASE
     Dosage: EXTENDED?RELEASE (0.375 MG DAILY)
     Route: 065

REACTIONS (5)
  - Headache [Unknown]
  - Incorrect drug dosage form administered [Unknown]
  - Dizziness [Unknown]
  - Pituitary haemorrhage [Unknown]
  - Inappropriate schedule of drug administration [Unknown]
